FAERS Safety Report 8318001-X (Version None)
Quarter: 2012Q2

REPORT INFORMATION
  Report Type: 
  Country: None (occurrence: None)
  Receive Date: 20120427
  Receipt Date: 20120425
  Transmission Date: 20120825
  Serious: No
  Sender: FDA-Public Use
  Company Number: US-BAYER-2012-041346

PATIENT

DRUGS (1)
  1. ALEVE [Suspect]
     Indication: PRODUCT USED FOR UNKNOWN INDICATION
     Dosage: 3  TABS
     Route: 048

REACTIONS (2)
  - INSOMNIA [None]
  - NO ADVERSE EVENT [None]
